FAERS Safety Report 8901411 (Version 2)
Quarter: 2013Q1

REPORT INFORMATION
  Report Type: Spontaneous
  Country: US (occurrence: US)
  Receive Date: 20121109
  Receipt Date: 20130111
  Transmission Date: 20140127
  Serious: Yes (Hospitalization)
  Sender: FDA-Public Use
  Company Number: US-B.I. PHARMACEUTICALS,INC./RIDGEFIELD-2012-BP-27316BP

PATIENT
  Age: 61 Year
  Sex: Male
  Weight: 116.12 kg

DRUGS (10)
  1. PRADAXA [Suspect]
     Indication: ATRIAL FIBRILLATION
     Dosage: 300 MG
     Route: 048
     Dates: end: 2012
  2. ALLOPURINOL [Concomitant]
  3. ADVAIR [Concomitant]
  4. LISINOPRIL [Concomitant]
  5. BYSTOLIC [Concomitant]
  6. SIMVASTATIN [Concomitant]
  7. SPIRONOLACTONE [Concomitant]
  8. FLOMAX [Concomitant]
  9. TORSEMIDE [Concomitant]
  10. AVODART [Concomitant]

REACTIONS (1)
  - Gastrointestinal haemorrhage [Recovered/Resolved]
